FAERS Safety Report 22207598 (Version 7)
Quarter: 2023Q2

REPORT INFORMATION
  Report Type: Spontaneous
  Country: US (occurrence: US)
  Receive Date: 20230413
  Receipt Date: 20230629
  Transmission Date: 20230721
  Serious: No
  Sender: FDA-Public Use
  Company Number: US-PFIZER INC-202300143526

PATIENT
  Age: 80 Year
  Sex: Male
  Weight: 95.25 kg

DRUGS (1)
  1. GENOTROPIN [Suspect]
     Active Substance: SOMATROPIN
     Dosage: 0.2 ON THE INJECTOR, INJECTION IN THE BELLY, DAILY

REACTIONS (6)
  - Device use error [Unknown]
  - Device use issue [Unknown]
  - Product dose omission issue [Unknown]
  - Device mechanical issue [Unknown]
  - Device physical property issue [Unknown]
  - Device information output issue [Unknown]

NARRATIVE: CASE EVENT DATE: 20230401
